FAERS Safety Report 25011963 (Version 1)
Quarter: 2025Q1

REPORT INFORMATION
  Report Type: Spontaneous
  Country: US (occurrence: US)
  Receive Date: 20250226
  Receipt Date: 20250226
  Transmission Date: 20250409
  Serious: No
  Sender: DR REDDYS
  Company Number: US-DRL-USA-USA/2025/02/002339

PATIENT

DRUGS (1)
  1. LIOTHYRONINE SODIUM [Suspect]
     Active Substance: LIOTHYRONINE SODIUM
     Indication: Product used for unknown indication
     Route: 065

REACTIONS (5)
  - Tri-iodothyronine decreased [Unknown]
  - Dysgeusia [Unknown]
  - Product size issue [Unknown]
  - Product taste abnormal [Unknown]
  - Product physical consistency issue [Unknown]
